FAERS Safety Report 7344437-X (Version None)
Quarter: 2011Q1

REPORT INFORMATION
  Report Type: 
  Country: None (occurrence: None)
  Receive Date: 20110310
  Receipt Date: 20110107
  Transmission Date: 20110831
  Serious: No
  Sender: FDA-Public Use
  Company Number: A0904017A

PATIENT
  Age: 48 Year
  Sex: Female

DRUGS (1)
  1. NICORETTE [Suspect]
     Dates: start: 20110106

REACTIONS (4)
  - DRUG ADMINISTRATION ERROR [None]
  - THROAT IRRITATION [None]
  - FLATULENCE [None]
  - HICCUPS [None]
